FAERS Safety Report 7521683-3 (Version None)
Quarter: 2011Q2

REPORT INFORMATION
  Report Type: 
  Country: None (occurrence: None)
  Receive Date: 20110603
  Receipt Date: 20110526
  Transmission Date: 20111010
  Serious: Yes (Other)
  Sender: FDA-Public Use
  Company Number: DK-BRACCO-000060

PATIENT
  Sex: Female

DRUGS (1)
  1. OMNISCAN [Suspect]
     Indication: SCAN WITH CONTRAST

REACTIONS (1)
  - NEPHROGENIC SYSTEMIC FIBROSIS [None]
